FAERS Safety Report 4677978-4 (Version None)
Quarter: 2005Q2

REPORT INFORMATION
  Report Type: 
  Country: None (occurrence: None)
  Receive Date: 20050531
  Receipt Date: 20050411
  Transmission Date: 20051028
  Serious: Yes (Other)
  Sender: FDA-Public Use
  Company Number: 2005AP02200

PATIENT
  Age: 81 Year
  Sex: Male
  Weight: 69 kg

DRUGS (12)
  1. MEROPEN [Suspect]
     Indication: PNEUMONIA
     Route: 041
     Dates: start: 20050226, end: 20050226
  2. TORSEMIDE [Concomitant]
     Indication: CARDIAC FAILURE
     Route: 048
     Dates: start: 20030816
  3. DIOVAN [Concomitant]
     Indication: HYPERTENSION
     Route: 048
     Dates: start: 20030913
  4. NORVASC [Concomitant]
     Indication: HYPERTENSION
     Route: 048
     Dates: start: 20031024
  5. ZYLORIC [Concomitant]
     Indication: HYPERURICAEMIA
     Route: 048
     Dates: start: 20031024
  6. HARNAL [Concomitant]
     Indication: BENIGN PROSTATIC HYPERPLASIA
     Route: 048
     Dates: start: 20031121
  7. DEPAS [Concomitant]
     Indication: CERVICOBRACHIAL SYNDROME
     Route: 048
     Dates: start: 20031205
  8. MYONAL [Concomitant]
     Indication: CERVICOBRACHIAL SYNDROME
     Route: 048
     Dates: start: 20031205
  9. GASTROM [Concomitant]
     Indication: GASTRITIS
     Route: 048
     Dates: start: 20040510
  10. ROCEPHIN [Concomitant]
     Indication: BRONCHITIS
     Route: 041
     Dates: start: 20050225, end: 20050225
  11. CRAVIT [Concomitant]
     Indication: BRONCHITIS ACUTE
     Route: 048
     Dates: start: 20050225, end: 20050227
  12. MUCODYNE [Concomitant]
     Indication: BRONCHITIS ACUTE
     Route: 048
     Dates: start: 20050225, end: 20050227

REACTIONS (2)
  - CONVULSION [None]
  - LOSS OF CONSCIOUSNESS [None]
